FAERS Safety Report 11574402 (Version 1)
Quarter: 2015Q3

REPORT INFORMATION
  Report Type: Spontaneous
  Country: US (occurrence: None)
  Receive Date: 20150929
  Receipt Date: 20150929
  Transmission Date: 20151125
  Serious: No
  Sender: FDA-Public Use
  Company Number: None

PATIENT
  Age: 54 Year
  Sex: Female
  Weight: 55.79 kg

DRUGS (4)
  1. CITRUCEL [Concomitant]
     Active Substance: METHYLCELLULOSE (4000 MPA.S)
  2. D3 [Concomitant]
     Active Substance: 25-HYDROXYCHOLECALCIFEROL, 5-TRANS-
  3. LIPO-FLAVONOID [Concomitant]
  4. BRISDELLE [Suspect]
     Active Substance: PAROXETINE MESYLATE
     Indication: HOT FLUSH
     Dosage: 1 PILL
     Route: 048
     Dates: start: 20150905, end: 20150912

REACTIONS (6)
  - Myalgia [None]
  - Pain in extremity [None]
  - Restlessness [None]
  - Asthenia [None]
  - Nervousness [None]
  - Vision blurred [None]

NARRATIVE: CASE EVENT DATE: 20150905
